FAERS Safety Report 5011828-1 (Version None)
Quarter: 2006Q2

REPORT INFORMATION
  Report Type: 
  Country: None (occurrence: None)
  Receive Date: 20060524
  Receipt Date: 20060524
  Transmission Date: 20061013
  Serious: Yes (Death, Hospitalization)
  Sender: FDA-Public Use
  Company Number: None

PATIENT
  Age: 53 Year
  Sex: Female

DRUGS (1)
  1. CISPLATIN [Suspect]
     Indication: OVARIAN CANCER
     Dosage: 40 MG/M2 X 6D
     Dates: start: 20050629

REACTIONS (10)
  - DISSEMINATED INTRAVASCULAR COAGULATION [None]
  - HAEMATOCRIT DECREASED [None]
  - LIVER FUNCTION TEST ABNORMAL [None]
  - NAUSEA [None]
  - PAIN [None]
  - PYREXIA [None]
  - THROMBOCYTOPENIA [None]
  - THROMBOSIS [None]
  - THROMBOTIC THROMBOCYTOPENIC PURPURA [None]
  - URINARY TRACT INFECTION [None]
